FAERS Safety Report 22853387 (Version 6)
Quarter: 2023Q4

REPORT INFORMATION
  Report Type: Spontaneous
  Country: US (occurrence: US)
  Receive Date: 20230823
  Receipt Date: 20231023
  Transmission Date: 20240110
  Serious: No
  Sender: FDA-Public Use
  Company Number: US-PFIZER INC-202300278694

PATIENT
  Age: 14 Year
  Sex: Male
  Weight: 38.56 kg

DRUGS (1)
  1. GENOTROPIN [Suspect]
     Active Substance: SOMATROPIN
     Indication: Growth disorder
     Dosage: UNK, DAILY (12 MILLIGRAM OR 10)
     Route: 058
     Dates: start: 202307

REACTIONS (2)
  - Device leakage [Unknown]
  - Liquid product physical issue [Unknown]
